FAERS Safety Report 8052564-7 (Version None)
Quarter: 2012Q1

REPORT INFORMATION
  Report Type: 
  Country: None (occurrence: None)
  Receive Date: 20120118
  Receipt Date: 20120112
  Transmission Date: 20120608
  Serious: Yes (Hospitalization, Other)
  Sender: FDA-Public Use
  Company Number: US-BAYER-200940284NA

PATIENT
  Age: 31 Year
  Sex: Male
  Weight: 90.703 kg

DRUGS (9)
  1. HEPARIN [Concomitant]
     Dosage: 1000U/30ML
     Route: 042
     Dates: start: 20050303, end: 20050303
  2. CALCIUM CHLORIDE [Concomitant]
     Dosage: 10% 10ML, 1 VIAL
     Route: 042
     Dates: start: 20050303, end: 20050303
  3. PROTAMINE SULFATE [Concomitant]
     Dosage: 250MG
     Route: 042
     Dates: start: 20050303, end: 20050303
  4. ESMOLOL HCL [Concomitant]
     Dosage: UNK
     Route: 042
     Dates: start: 20050303
  5. LIDOCAINE [Concomitant]
     Dosage: UNK
     Route: 042
     Dates: start: 20050303
  6. LASIX [Concomitant]
  7. TRASYLOL [Suspect]
     Indication: PRODUCT USED FOR UNKNOWN INDICATION
     Dosage: UNK
     Route: 042
     Dates: start: 20050303, end: 20050303
  8. MANNITOL [Concomitant]
     Dosage: 1MG
     Route: 042
     Dates: start: 20050303, end: 20050303
  9. SODIUM BICARBONATE [Concomitant]
     Dosage: 8.4%
     Route: 042
     Dates: start: 20050303, end: 20050303

REACTIONS (11)
  - ANXIETY [None]
  - FEAR [None]
  - RENAL FAILURE [None]
  - PAIN [None]
  - EMOTIONAL DISTRESS [None]
  - INJURY [None]
  - ANHEDONIA [None]
  - RENAL IMPAIRMENT [None]
  - RENAL INJURY [None]
  - STRESS [None]
  - UNEVALUABLE EVENT [None]
